FAERS Safety Report 12135205 (Version 2)
Quarter: 2016Q2

REPORT INFORMATION
  Report Type: Spontaneous
  Country: JP (occurrence: JP)
  Receive Date: 20160301
  Receipt Date: 20160407
  Transmission Date: 20160815
  Serious: Yes (Other)
  Sender: FDA-Public Use
  Company Number: JP-BRISTOL-MYERS SQUIBB COMPANY-BMS-2016-013563

PATIENT
  Age: 5 Decade
  Sex: Male

DRUGS (1)
  1. VEPESID [Suspect]
     Active Substance: ETOPOSIDE
     Indication: LYMPHOMA
     Route: 048

REACTIONS (2)
  - Ileus [Unknown]
  - Vomiting [Unknown]

NARRATIVE: CASE EVENT DATE: 20160215
